FAERS Safety Report 25875862 (Version 1)
Quarter: 2025Q4

REPORT INFORMATION
  Report Type: Spontaneous
  Country: EU (occurrence: EU)
  Receive Date: 20251003
  Receipt Date: 20251003
  Transmission Date: 20260118
  Serious: Yes (Hospitalization, Other)
  Sender: AUROBINDO
  Company Number: EU-JNJFOC-20250911820

PATIENT
  Age: 5 Decade
  Sex: Female
  Weight: 70 kg

DRUGS (17)
  1. RIVAROXABAN [Suspect]
     Active Substance: RIVAROXABAN
     Indication: Product used for unknown indication
     Dosage: UNK
     Route: 065
  2. OPSUMIT [Suspect]
     Active Substance: MACITENTAN
     Indication: Pulmonary arterial hypertension
     Dosage: 10 MILLIGRAM
     Route: 048
     Dates: start: 20190315
  3. SILDENAFIL [Concomitant]
     Active Substance: SILDENAFIL
     Indication: Pulmonary arterial hypertension
     Dosage: 60 UNITS UNSPECIFIED
     Route: 048
     Dates: start: 20190315
  4. VENTAVIS [Concomitant]
     Active Substance: ILOPROST
     Indication: Pulmonary arterial hypertension
     Dosage: DAILY DOSE :12
     Dates: start: 20240703
  5. VENTAVIS [Concomitant]
     Active Substance: ILOPROST
     Dosage: DAILY DOSE :6
     Route: 065
     Dates: start: 20231009, end: 20240703
  6. IRON [Concomitant]
     Active Substance: IRON
     Indication: Anaemia
     Dosage: UNK
     Route: 048
     Dates: start: 20250827
  7. POTASSIUM CHLORIDE [Concomitant]
     Active Substance: POTASSIUM CHLORIDE
     Indication: Hypokalaemia
     Dosage: UNK
     Route: 048
     Dates: start: 20250827
  8. PROPRANOLOL [Concomitant]
     Active Substance: PROPRANOLOL HYDROCHLORIDE
     Indication: Hypertension
     Dosage: UNK
     Route: 048
     Dates: start: 20250827
  9. NEBIVOLOL [Concomitant]
     Active Substance: NEBIVOLOL
     Indication: Cardiac failure
     Dosage: UNK
     Route: 048
     Dates: end: 20250827
  10. XARELTO [Concomitant]
     Active Substance: RIVAROXABAN
     Indication: Atrial fibrillation
     Dosage: UNK
     Route: 048
     Dates: end: 20250827
  11. FUROSEMIDE [Concomitant]
     Active Substance: FUROSEMIDE
     Indication: Cardiac failure
     Dosage: UNK
     Route: 048
  12. ALLOPURINOL [Concomitant]
     Active Substance: ALLOPURINOL
     Indication: Hypertension
     Dosage: UNK
     Route: 048
     Dates: start: 20231009
  13. Trifas [Concomitant]
     Indication: Cardiac failure
     Dosage: UNK
     Route: 048
  14. EUTHYROX [Concomitant]
     Active Substance: LEVOTHYROXINE SODIUM
     Indication: Hypothyroidism
     Dosage: UNK
     Route: 048
  15. PANTOPRAZOLE [Concomitant]
     Active Substance: PANTOPRAZOLE
     Indication: Gastrooesophageal reflux disease
     Dosage: UNK
     Route: 048
  16. HYDROCHLOROTHIAZIDE [Concomitant]
     Active Substance: HYDROCHLOROTHIAZIDE
     Indication: Cardiac failure
     Dosage: UNK
     Route: 048
  17. Spiron [Concomitant]
     Indication: Cardiac failure
     Dosage: UNK
     Route: 048

REACTIONS (3)
  - Renal failure [Unknown]
  - Microcytic anaemia [Recovering/Resolving]
  - Cardiac failure [Recovered/Resolved]

NARRATIVE: CASE EVENT DATE: 20250822
